FAERS Safety Report 5068545-1 (Version None)
Quarter: 2006Q3

REPORT INFORMATION
  Report Type: 
  Country: None (occurrence: None)
  Receive Date: 20060802
  Receipt Date: 20051117
  Transmission Date: 20061208
  Serious: Yes (Hospitalization)
  Sender: FDA-Public Use
  Company Number: US-BRISTOL-MYERS SQUIBB COMPANY-13184841

PATIENT
  Age: 61 Year
  Sex: Male
  Weight: 87 kg

DRUGS (11)
  1. COUMADIN [Suspect]
     Indication: CORONARY ARTERY BYPASS
     Route: 048
     Dates: start: 20050401, end: 20050901
  2. ACTOS [Concomitant]
  3. ATENOLOL [Concomitant]
  4. CAPTOPRIL [Concomitant]
  5. CILOSTAZOL [Concomitant]
  6. ELAVIL [Concomitant]
  7. GABAPENTIN [Concomitant]
  8. GLYBURIDE [Concomitant]
  9. LANTUS [Concomitant]
  10. METFORMIN [Concomitant]
  11. PENICILLIN [Concomitant]

REACTIONS (1)
  - THROMBOSIS [None]
